FAERS Safety Report 4885293-9 (Version None)
Quarter: 2006Q1

REPORT INFORMATION
  Report Type: 
  Country: None (occurrence: None)
  Receive Date: 20060119
  Receipt Date: 20060109
  Transmission Date: 20060701
  Serious: Yes (Hospitalization)
  Sender: FDA-Public Use
  Company Number: FR-RB-2552-2006

PATIENT
  Age: 28 Year
  Sex: Female
  Weight: 40 kg

DRUGS (1)
  1. BUPRENORPHINE HCL [Suspect]
     Indication: DRUG USE FOR UNKNOWN INDICATION
     Dosage: INJECTION SITE ON SKIN GRAFT
     Route: 042
     Dates: end: 20051114

REACTIONS (7)
  - ANOREXIA [None]
  - ENDOCARDITIS STAPHYLOCOCCAL [None]
  - INFLAMMATION [None]
  - INTENTIONAL DRUG MISUSE [None]
  - METHICILLIN-RESISTANT STAPHYLOCOCCAL AUREUS TEST POSITIVE [None]
  - PULMONARY SEPSIS [None]
  - TRICUSPID VALVE INCOMPETENCE [None]
